FAERS Safety Report 4608622-X (Version None)
Quarter: 2005Q1

REPORT INFORMATION
  Report Type: 
  Country: None (occurrence: None)
  Receive Date: 20050311
  Receipt Date: 20050311
  Transmission Date: 20050727
  Serious: Yes (Death)
  Sender: FDA-Public Use
  Company Number: None

PATIENT
  Sex: Male
  Weight: 127 kg

DRUGS (3)
  1. BUSULFAN [Suspect]
     Dosage: 1MG/KG PO Q6H X 16 DOSES ON DAYS -7 TO -4.
     Route: 048
     Dates: start: 20040303
  2. ETOPOSIDE [Suspect]
     Dosage: 60 MG/KG (TOTAL DOSE) IV OVER 4 HOURS ON DAY -3. AUTOLOGOUS PBSC INFUSION ON DAY 0.
     Route: 042
     Dates: start: 20040303
  3. NEUPOGEN [Suspect]
     Dosage: 5MCG/KG/DAY (ACTUAL BODY WEIGHT) SC BEGINNING ON DAY 0 UNTIL NEUTROPHILS } OR = TO 5,000/MCL F
     Route: 058
     Dates: start: 20040303

REACTIONS (9)
  - ASCITES [None]
  - BLOOD IRON INCREASED [None]
  - FATIGUE [None]
  - HEPATIC CIRRHOSIS [None]
  - HEPATIC FAILURE [None]
  - HEPATORENAL SYNDROME [None]
  - MALAISE [None]
  - PLEURAL EFFUSION [None]
  - TRANSPLANT REJECTION [None]
